FAERS Safety Report 8354854-7 (Version None)
Quarter: 2012Q2

REPORT INFORMATION
  Report Type: 
  Country: None (occurrence: None)
  Receive Date: 20120511
  Receipt Date: 20110414
  Transmission Date: 20120825
  Serious: Yes (Hospitalization)
  Sender: FDA-Public Use
  Company Number: US-ALEXION-A201100032

PATIENT
  Sex: Female

DRUGS (8)
  1. THYROID [Concomitant]
     Dosage: UNK
  2. FOLIC ACID [Concomitant]
     Indication: PAROXYSMAL NOCTURNAL HAEMOGLOBINURIA
     Dosage: UNK
  3. HYDROCORTISONE [Concomitant]
     Indication: ADDISON'S DISEASE
     Dosage: UNK
  4. FORAREB [Concomitant]
     Indication: ADDISON'S DISEASE
  5. PROZAC [Concomitant]
     Indication: DEPRESSION
     Dosage: UNK
  6. SOLIRIS [Suspect]
     Indication: PAROXYSMAL NOCTURNAL HAEMOGLOBINURIA
     Dosage: UNK
     Route: 042
  7. FOSAMAX [Concomitant]
     Indication: BONE DISORDER
     Dosage: UNK
  8. ANTIDEPRESSANTS [Concomitant]
     Dosage: UNK

REACTIONS (5)
  - DYSPNOEA [None]
  - ANAEMIA [None]
  - VIRAL INFECTION [None]
  - DECREASED APPETITE [None]
  - DEPRESSION [None]
